FAERS Safety Report 6836768-4 (Version None)
Quarter: 2010Q3

REPORT INFORMATION
  Report Type: 
  Country: None (occurrence: None)
  Receive Date: 20100708
  Receipt Date: 20100617
  Transmission Date: 20110219
  Serious: Yes (Other)
  Sender: FDA-Public Use
  Company Number: 20100280

PATIENT
  Age: 51 Year
  Sex: Male

DRUGS (9)
  1. NEOSTIGMINE METHYLSULFATE INJECTION, USP (0033-25) 1.0 MG/ML [Suspect]
     Indication: NEUROMUSCULAR BLOCKADE REVERSAL
     Dosage: 5 MG INTRAVENOUS
     Route: 042
  2. SUCCINYLCHOLINE CHLORIDE [Suspect]
     Indication: NEUROMUSCULAR BLOCKADE
     Dosage: 120 MG
  3. MIDAZOLAM HCL [Concomitant]
  4. FENTANYL [Concomitant]
  5. VECURONIUM BROMIDE [Concomitant]
  6. GLYCOPYRROLATE INJECTION, USP [Concomitant]
  7. SEVOFLURANE [Concomitant]
  8. NITROUS OXIDE [Concomitant]
  9. PROPOFOL [Concomitant]

REACTIONS (2)
  - ANAESTHETIC COMPLICATION [None]
  - NEUROMUSCULAR BLOCK PROLONGED [None]
